FAERS Safety Report 10712807 (Version 1)
Quarter: 2015Q1

REPORT INFORMATION
  Report Type: Spontaneous
  Country: FR (occurrence: FR)
  Receive Date: 20150115
  Receipt Date: 20150115
  Transmission Date: 20150721
  Serious: Yes (Life-Threatening, Hospitalization)
  Sender: FDA-Public Use
  Company Number: FR-ROCHE-1521355

PATIENT
  Age: 67 Year
  Sex: Male
  Weight: 60 kg

DRUGS (1)
  1. APRANAX [Suspect]
     Active Substance: NAPROXEN
     Indication: PAIN
     Route: 048
     Dates: start: 201409, end: 20141130

REACTIONS (4)
  - Haemorrhagic anaemia [Recovered/Resolved]
  - Peritonitis [Recovered/Resolved]
  - Shock [Recovered/Resolved]
  - Perforated ulcer [Recovered/Resolved]

NARRATIVE: CASE EVENT DATE: 20141130
